FAERS Safety Report 10734135 (Version 8)
Quarter: 2015Q4

REPORT INFORMATION
  Report Type: Spontaneous
  Country: US (occurrence: US)
  Receive Date: 20150123
  Receipt Date: 20151026
  Transmission Date: 20160304
  Serious: Yes (Hospitalization, Other)
  Sender: FDA-Public Use
  Company Number: US-009507513-1501USA008006

PATIENT
  Sex: Female
  Weight: 77.55 kg

DRUGS (4)
  1. ALENDRONATE SODIUM. [Suspect]
     Active Substance: ALENDRONATE SODIUM
     Dosage: 70 MG, UNK
     Dates: start: 20110615, end: 20111118
  2. FOSAMAX PLUS D [Suspect]
     Active Substance: ALENDRONATE SODIUM\CHOLECALCIFEROL
     Indication: OSTEOPOROSIS PROPHYLAXIS
     Dosage: 70 MG, UNK
     Route: 048
     Dates: start: 2008, end: 2013
  3. FOSAMAX [Suspect]
     Active Substance: ALENDRONATE SODIUM
     Indication: OSTEOPENIA
  4. FOSAMAX [Suspect]
     Active Substance: ALENDRONATE SODIUM
     Indication: OSTEOPOROSIS
     Dosage: 70 MG, UNK
     Route: 048
     Dates: start: 1997, end: 2008

REACTIONS (44)
  - Intramedullary rod insertion [Unknown]
  - Internal fixation of fracture [Unknown]
  - Depression [Recovered/Resolved]
  - Tendonitis [Unknown]
  - Deep vein thrombosis [Unknown]
  - Muscular weakness [Unknown]
  - Bursitis [Unknown]
  - Femur fracture [Recovering/Resolving]
  - Thyroid disorder [Unknown]
  - Contusion [Unknown]
  - Hyperglycaemia [Unknown]
  - Intramedullary rod insertion [Unknown]
  - Bone graft [Unknown]
  - Bone graft [Unknown]
  - Cardiac pacemaker insertion [Unknown]
  - Foot fracture [Unknown]
  - Haemorrhagic anaemia [Unknown]
  - Renal failure [Unknown]
  - Low turnover osteopathy [Unknown]
  - Anxiety [Recovered/Resolved]
  - Vitamin D deficiency [Unknown]
  - Hypertension [Not Recovered/Not Resolved]
  - Fall [Unknown]
  - Device breakage [Unknown]
  - Pubis fracture [Unknown]
  - Arthralgia [Unknown]
  - Pulmonary embolism [Unknown]
  - Haematoma [Unknown]
  - Eye operation [Unknown]
  - Vena cava filter insertion [Unknown]
  - Fungal infection [Unknown]
  - Fracture nonunion [Recovered/Resolved]
  - Vitamin B12 abnormal [Unknown]
  - Hypothyroidism [Unknown]
  - Gastrooesophageal reflux disease [Unknown]
  - Musculoskeletal pain [Unknown]
  - Cholecystectomy [Unknown]
  - Liver function test abnormal [Recovering/Resolving]
  - Hospitalisation [Unknown]
  - Blood cholesterol increased [Not Recovered/Not Resolved]
  - Neuropathy peripheral [Unknown]
  - Varicose vein operation [Unknown]
  - Gait disturbance [Unknown]
  - Patellofemoral pain syndrome [Unknown]

NARRATIVE: CASE EVENT DATE: 2000
